FAERS Safety Report 9631136 (Version 1)
Quarter: 2013Q4

REPORT INFORMATION
  Report Type: Spontaneous
  Country: US (occurrence: None)
  Receive Date: 20131016
  Receipt Date: 20131016
  Transmission Date: 20140711
  Serious: No
  Sender: FDA-Public Use
  Company Number: None

PATIENT
  Age: 78 Year
  Sex: Male

DRUGS (1)
  1. BCG LIVE [Suspect]
     Dosage: INTRAVESICAL

REACTIONS (2)
  - Bursitis [None]
  - Off label use [None]
